FAERS Safety Report 20805850 (Version 1)
Quarter: 2022Q2

REPORT INFORMATION
  Report Type: Spontaneous
  Country: US (occurrence: US)
  Receive Date: 20220510
  Receipt Date: 20220510
  Transmission Date: 20220720
  Serious: No
  Sender: FDA-Public Use
  Company Number: US-ALLERGAN-2205716US

PATIENT
  Age: 62 Year
  Sex: Male

DRUGS (1)
  1. VUITY [Suspect]
     Active Substance: PILOCARPINE HYDROCHLORIDE
     Indication: Presbyopia
     Dosage: 2 GTT, SINGLE
     Route: 047
     Dates: start: 20220214, end: 20220214

REACTIONS (5)
  - Periorbital swelling [Recovered/Resolved]
  - Dry eye [Recovered/Resolved]
  - Blepharal pigmentation [Unknown]
  - Eye irritation [Recovered/Resolved]
  - Therapeutic response decreased [Unknown]

NARRATIVE: CASE EVENT DATE: 20220214
